FAERS Safety Report 6083141-5 (Version None)
Quarter: 2009Q1

REPORT INFORMATION
  Report Type: 
  Country: None (occurrence: None)
  Receive Date: 20090213
  Receipt Date: 20090213
  Transmission Date: 20090719
  Serious: No
  Sender: FDA-Public Use
  Company Number: None

PATIENT
  Age: 60 Year
  Sex: Male
  Weight: 85.7298 kg

DRUGS (1)
  1. WELCHOL [Suspect]

REACTIONS (4)
  - DIZZINESS [None]
  - DYSPNOEA [None]
  - PRURITUS [None]
  - URTICARIA [None]
